FAERS Safety Report 24761836 (Version 1)
Quarter: 2024Q4

REPORT INFORMATION
  Report Type: Spontaneous
  Country: US (occurrence: US)
  Receive Date: 20241221
  Receipt Date: 20241221
  Transmission Date: 20250115
  Serious: Yes (Death, Hospitalization, Other)
  Sender: ALEXION PHARMACEUTICALS
  Company Number: US-ASTRAZENECA-202412USA016423US

PATIENT
  Age: 57 Year

DRUGS (18)
  1. OMEPRAZOLE [Suspect]
     Active Substance: OMEPRAZOLE
  2. OMEPRAZOLE [Suspect]
     Active Substance: OMEPRAZOLE
  3. METOPROLOL TARTRATE [Suspect]
     Active Substance: METOPROLOL TARTRATE
  4. METOPROLOL TARTRATE [Suspect]
     Active Substance: METOPROLOL TARTRATE
  5. AMITRIPTYLINE [Suspect]
     Active Substance: AMITRIPTYLINE
  6. AMLODIPINE [Suspect]
     Active Substance: AMLODIPINE BESYLATE
  7. ALCOHOL [Suspect]
     Active Substance: ALCOHOL
  8. VENLAFAXINE [Suspect]
     Active Substance: VENLAFAXINE HYDROCHLORIDE
  9. HYDROXYZINE [Suspect]
     Active Substance: HYDROXYZINE HYDROCHLORIDE
  10. DIAZEPAM [Suspect]
     Active Substance: DIAZEPAM
  11. ACETAMINOPHEN [Suspect]
     Active Substance: ACETAMINOPHEN
  12. RISPERIDONE [Suspect]
     Active Substance: RISPERIDONE
  13. TAMSULOSIN [Suspect]
     Active Substance: TAMSULOSIN
  14. ONDANSETRON [Suspect]
     Active Substance: ONDANSETRON
  15. OXCARBAZEPINE [Suspect]
     Active Substance: OXCARBAZEPINE
  16. ROSUVASTATIN [Suspect]
     Active Substance: ROSUVASTATIN
  17. VALSARTAN [Suspect]
     Active Substance: VALSARTAN
  18. IBUPROFEN [Suspect]
     Active Substance: IBUPROFEN

REACTIONS (2)
  - Toxicity to various agents [Fatal]
  - Completed suicide [Fatal]
